FAERS Safety Report 19080422 (Version 1)
Quarter: 2021Q2

REPORT INFORMATION
  Report Type: Spontaneous
  Country: LB (occurrence: LB)
  Receive Date: 20210401
  Receipt Date: 20210401
  Transmission Date: 20210717
  Serious: Yes (Hospitalization, Other)
  Sender: FDA-Public Use
  Company Number: LB-AMGEN-LBNSP2021045699

PATIENT
  Age: 36 Year
  Sex: Male

DRUGS (5)
  1. BLINATUMOMAB [Suspect]
     Active Substance: BLINATUMOMAB
     Dosage: 9 MICROGRAM, QD
     Route: 065
  2. METHOTREXATE. [Concomitant]
     Active Substance: METHOTREXATE
     Dosage: 6 MILLIGRAM
     Route: 065
  3. DEXAMETHASONE. [Concomitant]
     Active Substance: DEXAMETHASONE
     Indication: SEIZURE PROPHYLAXIS
     Dosage: 24 MILLIGRAM (OVER 3 DAYS)
     Route: 042
  4. BLINATUMOMAB [Suspect]
     Active Substance: BLINATUMOMAB
     Indication: B PRECURSOR TYPE ACUTE LEUKAEMIA
     Dosage: 28 MICROGRAM, QD
     Route: 065
  5. DEXAMETHASONE. [Concomitant]
     Active Substance: DEXAMETHASONE
     Indication: NEUROTOXICITY
     Dosage: 24 MILLIGRAM (FOR 4 DAYS)
     Route: 065

REACTIONS (6)
  - Hyporesponsive to stimuli [Recovered/Resolved]
  - Cytokine release syndrome [Unknown]
  - Disturbance in attention [Recovered/Resolved]
  - Speech disorder [Recovered/Resolved]
  - Tremor [Recovered/Resolved]
  - Neurotoxicity [Recovered/Resolved]
